FAERS Safety Report 19603089 (Version 1)
Quarter: 2021Q3

REPORT INFORMATION
  Report Type: Spontaneous
  Country: IN (occurrence: IN)
  Receive Date: 20210723
  Receipt Date: 20210723
  Transmission Date: 20211014
  Serious: Yes (Death, Other)
  Sender: FDA-Public Use
  Company Number: IN-SUN PHARMACEUTICAL INDUSTRIES LTD-2021R1-305426

PATIENT
  Age: 28 Year
  Sex: Female

DRUGS (3)
  1. URSODEOXYCHOLIC ACID [Suspect]
     Active Substance: URSODIOL
     Indication: STEVENS-JOHNSON SYNDROME
     Dosage: 300 MILLIGRAM, BID
     Route: 065
  2. DEXAMETHASONE. [Suspect]
     Active Substance: DEXAMETHASONE
     Indication: STEVENS-JOHNSON SYNDROME
     Dosage: 4 MILLIGRAM, DAILY
     Route: 042
  3. FUSIDIC ACID [Suspect]
     Active Substance: FUSIDIC ACID
     Indication: STEVENS-JOHNSON SYNDROME
     Dosage: UNK
     Route: 061

REACTIONS (1)
  - Condition aggravated [Fatal]
